FAERS Safety Report 8091852-5 (Version None)
Quarter: 2012Q1

REPORT INFORMATION
  Report Type: 
  Country: None (occurrence: None)
  Receive Date: 20120129
  Receipt Date: 20111115
  Transmission Date: 20120608
  Serious: No
  Sender: FDA-Public Use
  Company Number: US-ABBOTT-11P-163-0874125-00

PATIENT
  Age: 60 Year
  Sex: Female

DRUGS (5)
  1. CELEXA [Concomitant]
     Indication: DEPRESSION
     Route: 048
  2. TRAMADOL HCL [Concomitant]
     Indication: PRODUCT USED FOR UNKNOWN INDICATION
  3. AMITRIPTYLINE HCL [Concomitant]
     Indication: FATIGUE
     Route: 048
  4. METOPROLOL TARTRATE [Concomitant]
     Indication: HYPERTENSION
     Route: 048
  5. HUMIRA [Suspect]
     Indication: PSORIASIS

REACTIONS (2)
  - CYSTITIS [None]
  - URINARY RETENTION [None]
